FAERS Safety Report 7947225-6 (Version None)
Quarter: 2011Q4

REPORT INFORMATION
  Report Type: 
  Country: None (occurrence: None)
  Receive Date: 20111129
  Receipt Date: 20111116
  Transmission Date: 20120403
  Serious: Yes (Other)
  Sender: FDA-Public Use
  Company Number: CN-ASTRAZENECA-2011SE69567

PATIENT
  Sex: Female

DRUGS (1)
  1. PROPOFOL [Suspect]
     Indication: ANALGESIC THERAPY
     Dosage: 2-3 MG/KG
     Route: 042

REACTIONS (2)
  - HEART RATE DECREASED [None]
  - PALLOR [None]
